FAERS Safety Report 9736314 (Version 1)
Quarter: 2013Q4

REPORT INFORMATION
  Report Type: Report from Study
  Country: US (occurrence: US)
  Receive Date: 20131206
  Receipt Date: 20131206
  Transmission Date: 20140711
  Serious: Yes (Death)
  Sender: FDA-Public Use
  Company Number: US-ROCHE-1313865

PATIENT
  Age: 57 Year
  Sex: Male

DRUGS (10)
  1. AVASTIN [Suspect]
     Indication: LUNG NEOPLASM MALIGNANT
     Dosage: DOSE: 28/SEP/2012
     Route: 042
     Dates: start: 20120907
  2. AVASTIN [Suspect]
     Indication: BONE CANCER
     Dosage: DOSE: 09/NOV/2012
     Route: 042
     Dates: start: 20121019
  3. CARBOPLATIN [Concomitant]
     Route: 042
     Dates: start: 20120907
  4. PACLITAXEL [Concomitant]
     Route: 042
     Dates: start: 20120907
  5. ONDANSETRON [Concomitant]
     Route: 048
     Dates: start: 20120907
  6. FAMOTIDINE [Concomitant]
     Route: 042
     Dates: start: 20120907
  7. PROCHLORPERAZINE [Concomitant]
     Route: 042
     Dates: start: 20120907
  8. DEXAMETHASONE [Concomitant]
     Dosage: 5 TABS 12 HRS AND 6 HRS BEFORE CHEMO TREATMENT
     Route: 065
  9. HYDROXYCHLOROQUINE [Concomitant]
     Route: 065
  10. COMPAZINE [Concomitant]

REACTIONS (1)
  - Death [Fatal]
